FAERS Safety Report 13045988 (Version 1)
Quarter: 2016Q4

REPORT INFORMATION
  Report Type: Spontaneous
  Country: AU (occurrence: AU)
  Receive Date: 20161220
  Receipt Date: 20161220
  Transmission Date: 20170207
  Serious: Yes (Other)
  Sender: FDA-Public Use
  Company Number: AU-HIKMA PHARMACEUTICALS CO. LTD-2016AU013097

PATIENT

DRUGS (3)
  1. PREDNISONE. [Concomitant]
     Active Substance: PREDNISONE
     Dosage: UNK
  2. INFLECTRA [Suspect]
     Active Substance: INFLIXIMAB-DYYB
     Indication: SARCOIDOSIS
     Dosage: 5 MG,  WEEKS 0, 2 AND 6, THEN 8 WEEKLY
     Dates: start: 201512
  3. INFLECTRA [Suspect]
     Active Substance: INFLIXIMAB-DYYB
     Indication: NEUROSARCOIDOSIS

REACTIONS (7)
  - Sarcoidosis [Unknown]
  - Disease recurrence [Unknown]
  - Neurosarcoidosis [None]
  - Headache [Unknown]
  - Disease progression [Unknown]
  - Fatigue [Unknown]
  - Myalgia [Unknown]

NARRATIVE: CASE EVENT DATE: 201607
